FAERS Safety Report 7705753-2 (Version None)
Quarter: 2011Q3

REPORT INFORMATION
  Report Type: 
  Country: None (occurrence: None)
  Receive Date: 20110824
  Receipt Date: 20110811
  Transmission Date: 20111222
  Serious: No
  Sender: FDA-Public Use
  Company Number: US-B.I. PHARMACEUTICALS,INC./RIDGEFIELD-2011-BP-19814BP

PATIENT

DRUGS (1)
  1. PRADAXA [Suspect]

REACTIONS (2)
  - DYSPEPSIA [None]
  - MALAISE [None]
